FAERS Safety Report 4856147-9 (Version None)
Quarter: 2005Q4

REPORT INFORMATION
  Report Type: 
  Country: None (occurrence: None)
  Receive Date: 20051216
  Receipt Date: 20050601
  Transmission Date: 20060501
  Serious: Yes (Hospitalization, Disabling, Other)
  Sender: FDA-Public Use
  Company Number: US-MERCK-0512USA02193

PATIENT
  Sex: Male
  Weight: 84 kg

DRUGS (2)
  1. VIOXX [Suspect]
     Indication: BACK DISORDER
     Route: 048
  2. VIOXX [Suspect]
     Indication: ARTHROPATHY
     Route: 048

REACTIONS (4)
  - BACK INJURY [None]
  - CARDIAC DISORDER [None]
  - INTESTINAL FUNCTIONAL DISORDER [None]
  - MYOCARDIAL INFARCTION [None]
